FAERS Safety Report 5774410-4 (Version None)
Quarter: 2008Q2

REPORT INFORMATION
  Report Type: 
  Country: None (occurrence: None)
  Receive Date: 20080616
  Receipt Date: 20080604
  Transmission Date: 20081010
  Serious: Yes (Other)
  Sender: FDA-Public Use
  Company Number: US-PFIZER INC-2008029237

PATIENT
  Sex: Male

DRUGS (1)
  1. LYRICA [Suspect]
     Indication: NEURALGIA

REACTIONS (5)
  - DIZZINESS [None]
  - FLAT AFFECT [None]
  - SOMNOLENCE [None]
  - SPINAL COLUMN STENOSIS [None]
  - WEIGHT INCREASED [None]
